FAERS Safety Report 5936393-3 (Version None)
Quarter: 2008Q4

REPORT INFORMATION
  Report Type: 
  Country: None (occurrence: None)
  Receive Date: 20081030
  Receipt Date: 20081020
  Transmission Date: 20090506
  Serious: Yes (Hospitalization, Other)
  Sender: FDA-Public Use
  Company Number: LB-ELI_LILLY_AND_COMPANY-LB200808002464

PATIENT
  Age: 47 Year
  Sex: Female

DRUGS (3)
  1. CYMBALTA [Suspect]
     Indication: DEPRESSION
     Dosage: 60 MG, UNKNOWN
     Route: 065
  2. CYMBALTA [Suspect]
     Dosage: 120 MG, DAILY (1/D)
     Route: 065
  3. ALPRAZOLAM [Concomitant]
     Indication: GENERALISED ANXIETY DISORDER
     Dosage: 2 MG, AT BED TIME
     Route: 065

REACTIONS (5)
  - DEPRESSION [None]
  - DEPRESSION SUICIDAL [None]
  - IRRITABILITY [None]
  - PAIN IN EXTREMITY [None]
  - SUICIDE ATTEMPT [None]
